FAERS Safety Report 14277425 (Version 2)
Quarter: 2018Q1

REPORT INFORMATION
  Report Type: Report from Study
  Country: IE (occurrence: IE)
  Receive Date: 20171212
  Receipt Date: 20180213
  Transmission Date: 20180508
  Serious: Yes (Other)
  Sender: FDA-Public Use
  Company Number: IE-JNJFOC-20171211543

PATIENT
  Age: 80 Year
  Sex: Male
  Weight: 68 kg

DRUGS (14)
  1. STELARA [Suspect]
     Active Substance: USTEKINUMAB
     Indication: PSORIASIS
     Route: 058
     Dates: start: 20170523
  2. ALLOPURINOL. [Concomitant]
     Active Substance: ALLOPURINOL
     Route: 065
     Dates: start: 20180109
  3. IDEOS [Concomitant]
     Active Substance: CALCIUM CARBONATE\CHOLECALCIFEROL
     Dosage: CHEWABLE
     Route: 065
     Dates: start: 20180109
  4. SALAMOL [Concomitant]
     Active Substance: ALBUTEROL
     Dosage: 2.5 MG/ 2.5 ML
     Route: 055
     Dates: start: 20180109
  5. NEXIUM [Concomitant]
     Active Substance: ESOMEPRAZOLE MAGNESIUM
     Dosage: GASTRO-RESISTANT
     Route: 065
     Dates: start: 20180109
  6. IDEOS [Concomitant]
     Active Substance: CALCIUM CARBONATE\CHOLECALCIFEROL
     Route: 065
  7. COMBIVENT [Concomitant]
     Active Substance: ALBUTEROL SULFATE\IPRATROPIUM BROMIDE
     Route: 055
     Dates: start: 20171219
  8. COMBIVENT [Concomitant]
     Active Substance: ALBUTEROL SULFATE\IPRATROPIUM BROMIDE
     Route: 055
     Dates: start: 20180109
  9. VENTOLIN [Concomitant]
     Active Substance: ALBUTEROL SULFATE
     Route: 065
  10. DELTACORTRIL [Concomitant]
     Active Substance: PREDNISOLONE
     Route: 065
  11. SALAMOL [Concomitant]
     Active Substance: ALBUTEROL
     Dosage: 200 DOSE 2 PUFFS QDS PRN
     Route: 055
     Dates: start: 20180109
  12. UMECLIDINIUM W/VILANTEROL [Concomitant]
     Route: 055
     Dates: start: 20180109
  13. EMAZOLE [Concomitant]
     Active Substance: ESOMEPRAZOLE
     Route: 065
  14. STILNOCT [Concomitant]
     Active Substance: ZOLPIDEM TARTRATE
     Route: 065
     Dates: start: 20180109

REACTIONS (1)
  - Chronic obstructive pulmonary disease [Recovered/Resolved]

NARRATIVE: CASE EVENT DATE: 20171205
